FAERS Safety Report 23475095 (Version 1)
Quarter: 2024Q1

REPORT INFORMATION
  Report Type: Spontaneous
  Country: US (occurrence: US)
  Receive Date: 20240204
  Receipt Date: 20240204
  Transmission Date: 20240410
  Serious: No
  Sender: FDA-Public Use
  Company Number: US-HORIZON THERAPEUTICS-HZN-2023-009114

PATIENT

DRUGS (1)
  1. TEPEZZA [Suspect]
     Active Substance: TEPROTUMUMAB-TRBW
     Indication: Endocrine ophthalmopathy
     Dosage: UNK
     Route: 065
     Dates: start: 20230927

REACTIONS (9)
  - Dry mouth [Unknown]
  - Neck pain [Unknown]
  - Dyspnoea [Not Recovered/Not Resolved]
  - Middle ear effusion [Unknown]
  - Panic reaction [Unknown]
  - Dry skin [Unknown]
  - Diarrhoea [Unknown]
  - Weight decreased [Unknown]
  - Dysgeusia [Unknown]
